FAERS Safety Report 4608717-0 (Version None)
Quarter: 2005Q1

REPORT INFORMATION
  Report Type: 
  Country: None (occurrence: None)
  Receive Date: 20050315
  Receipt Date: 20050304
  Transmission Date: 20050727
  Serious: Yes (Death, Hospitalization)
  Sender: FDA-Public Use
  Company Number: US-ROCHE-397805

PATIENT
  Age: 60 Year
  Sex: Male
  Weight: 79.8 kg

DRUGS (7)
  1. PEGASYS [Suspect]
     Indication: HEPATITIS C
     Route: 058
     Dates: start: 20050105
  2. COPEGUS [Suspect]
     Indication: HEPATITIS C
     Dosage: DOSING REGIMEN REPORTED AS 2 - 3.
     Route: 048
     Dates: start: 20050105
  3. WARFARIN [Concomitant]
  4. OXYCODONE HCL [Concomitant]
  5. METFORMIN HCL [Concomitant]
  6. MORPHINE SULFATE [Concomitant]
  7. RANITIDINE [Concomitant]

REACTIONS (6)
  - COAGULOPATHY [None]
  - HEPATIC FIBROSIS [None]
  - METASTASES TO ADRENALS [None]
  - METASTASES TO LIVER [None]
  - METASTASES TO PANCREAS [None]
  - METASTATIC NEOPLASM [None]
